FAERS Safety Report 23461797 (Version 1)
Quarter: 2024Q1

REPORT INFORMATION
  Report Type: Spontaneous
  Country: IL (occurrence: IL)
  Receive Date: 20240131
  Receipt Date: 20240131
  Transmission Date: 20240410
  Serious: Yes (Other)
  Sender: FDA-Public Use
  Company Number: IL-TEVA-VS-3147971

PATIENT
  Age: 50 Year
  Sex: Male

DRUGS (2)
  1. DEUTETRABENAZINE [Suspect]
     Active Substance: DEUTETRABENAZINE
     Route: 065
  2. DEUTETRABENAZINE [Suspect]
     Active Substance: DEUTETRABENAZINE
     Route: 065

REACTIONS (4)
  - Epilepsy [Unknown]
  - Chorea [Unknown]
  - Depression [Unknown]
  - Parkinsonism [Unknown]
